FAERS Safety Report 5496104-5 (Version None)
Quarter: 2007Q4

REPORT INFORMATION
  Report Type: 
  Country: None (occurrence: None)
  Receive Date: 20071025
  Receipt Date: 20070125
  Transmission Date: 20080405
  Serious: No
  Sender: FDA-Public Use
  Company Number: A0637025A

PATIENT
  Age: 70 Year
  Sex: Female

DRUGS (3)
  1. ADVAIR DISKUS 100/50 [Suspect]
     Indication: CHRONIC OBSTRUCTIVE PULMONARY DISEASE
     Dosage: 1BLS TWICE PER DAY
     Route: 055
  2. SPIRIVA [Concomitant]
  3. FLONASE [Concomitant]

REACTIONS (1)
  - TOOTH DISORDER [None]
